FAERS Safety Report 17338288 (Version 1)
Quarter: 2020Q1

REPORT INFORMATION
  Report Type: Spontaneous
  Country: US (occurrence: US)
  Receive Date: 20200129
  Receipt Date: 20200129
  Transmission Date: 20200409
  Serious: Yes (Other)
  Sender: FDA-Public Use
  Company Number: US-ROCHE-2532186

PATIENT
  Age: 44 Year
  Sex: Male
  Weight: 72.64 kg

DRUGS (1)
  1. OCREVUS [Suspect]
     Active Substance: OCRELIZUMAB
     Indication: PROGRESSIVE MULTIPLE SCLEROSIS
     Dosage: FIRST HALF DOSE OF 300 MG ;ONGOING: YES
     Route: 042
     Dates: start: 20200106

REACTIONS (4)
  - Malaise [Not Recovered/Not Resolved]
  - Anaphylactic shock [Recovered/Resolved]
  - Asthenia [Not Recovered/Not Resolved]
  - Joint instability [Not Recovered/Not Resolved]

NARRATIVE: CASE EVENT DATE: 20200106
